FAERS Safety Report 4325573-9 (Version None)
Quarter: 2004Q1

REPORT INFORMATION
  Report Type: 
  Country: None (occurrence: None)
  Receive Date: 20040324
  Receipt Date: 20040310
  Transmission Date: 20041129
  Serious: Yes (Disabling)
  Sender: FDA-Public Use
  Company Number: 2004017043

PATIENT
  Age: 65 Year
  Sex: Female

DRUGS (3)
  1. NORVASC [Suspect]
     Indication: ILL-DEFINED DISORDER
  2. ZOLOFT [Suspect]
     Indication: ILL-DEFINED DISORDER
  3. CELECOXIB (CELECOXIB) [Suspect]
     Indication: ILL-DEFINED DISORDER

REACTIONS (1)
  - DISABILITY [None]
